FAERS Safety Report 5171708-8 (Version None)
Quarter: 2006Q4

REPORT INFORMATION
  Report Type: 
  Country: None (occurrence: None)
  Receive Date: 20061213
  Receipt Date: 20061207
  Transmission Date: 20070319
  Serious: Yes (Death)
  Sender: FDA-Public Use
  Company Number: US-BRISTOL-MYERS SQUIBB COMPANY-13604822

PATIENT

DRUGS (1)
  1. COUMADIN [Suspect]

REACTIONS (1)
  - HEAD INJURY [None]
